FAERS Safety Report 22143929 (Version 2)
Quarter: 2023Q2

REPORT INFORMATION
  Report Type: Spontaneous
  Country: JP (occurrence: JP)
  Receive Date: 20230327
  Receipt Date: 20230402
  Transmission Date: 20230721
  Serious: Yes (Other)
  Sender: FDA-Public Use
  Company Number: JP-002147023-NVSJ2022JP005424

PATIENT
  Age: 42 Year
  Sex: Female
  Weight: 53.4 kg

DRUGS (1)
  1. FINGOLIMOD HYDROCHLORIDE [Suspect]
     Active Substance: FINGOLIMOD HYDROCHLORIDE
     Indication: Secondary progressive multiple sclerosis
     Dosage: 0.5 MG, QOD
     Route: 048
     Dates: start: 20130801, end: 20210304

REACTIONS (4)
  - Multiple sclerosis relapse [Not Recovered/Not Resolved]
  - Lymphocyte count decreased [Unknown]
  - Central nervous system lesion [Unknown]
  - Product use in unapproved indication [Unknown]

NARRATIVE: CASE EVENT DATE: 20200525
